FAERS Safety Report 7300936-8 (Version None)
Quarter: 2011Q1

REPORT INFORMATION
  Report Type: 
  Country: None (occurrence: None)
  Receive Date: 20110218
  Receipt Date: 20110204
  Transmission Date: 20110831
  Serious: Yes (Hospitalization)
  Sender: FDA-Public Use
  Company Number: DE-MYLANLABS-2011S1002365

PATIENT
  Age: 85 Year
  Sex: Female

DRUGS (5)
  1. QUERTO [Concomitant]
     Indication: HYPERTENSION
     Route: 048
  2. GABAPENTIN [Suspect]
     Indication: PAIN
     Route: 048
     Dates: start: 20110112, end: 20110116
  3. LEVOTHYROXINE SODIUM [Concomitant]
     Indication: HYPOTHYROIDISM
     Route: 048
  4. ACTRAPID [Concomitant]
     Indication: TYPE 2 DIABETES MELLITUS
     Dosage: DOSIS NACH WERT
     Route: 058
  5. PROTAPHANE [Concomitant]
     Indication: TYPE 2 DIABETES MELLITUS
     Dosage: NACH WERT
     Route: 058

REACTIONS (1)
  - DISTURBANCE IN ATTENTION [None]
